FAERS Safety Report 9198628 (Version 3)
Quarter: 2014Q1

REPORT INFORMATION
  Report Type: Spontaneous
  Country: US (occurrence: US)
  Receive Date: 20130329
  Receipt Date: 20140321
  Transmission Date: 20141002
  Serious: Yes (Other)
  Sender: FDA-Public Use
  Company Number: US-JNJFOC-20130314200

PATIENT
  Age: 37 Year
  Sex: Female
  Weight: 116.58 kg

DRUGS (5)
  1. INVEGA SUSTENNA [Suspect]
     Indication: SCHIZOAFFECTIVE DISORDER
     Dosage: FIRST DOSE IN DELTOID
     Route: 030
     Dates: start: 20130227
  2. INVEGA SUSTENNA [Suspect]
     Indication: SCHIZOAFFECTIVE DISORDER
     Dosage: 1 WEEK LATER, SECOND DOSE 156 MG IN DELTOID
     Route: 030
     Dates: start: 201303, end: 201303
  3. INVEGA SUSTENNA [Suspect]
     Indication: SCHIZOAFFECTIVE DISORDER
     Dosage: THIRD DOSE ONE MONTH APART
     Route: 030
     Dates: start: 2013, end: 20130724
  4. INVEGA [Concomitant]
     Indication: SCHIZOAFFECTIVE DISORDER
     Route: 048
     Dates: start: 20130403, end: 20131014
  5. CAMPRAL [Concomitant]
     Indication: ALCOHOL ABUSE
     Route: 065

REACTIONS (7)
  - Cellulitis [Not Recovered/Not Resolved]
  - Injection site erythema [Recovered/Resolved]
  - Injection site warmth [Recovered/Resolved]
  - Injection site mass [Recovered/Resolved]
  - Injection site nodule [Recovered/Resolved]
  - Injection site swelling [Not Recovered/Not Resolved]
  - Injection site irritation [Not Recovered/Not Resolved]
